FAERS Safety Report 10340797 (Version 1)
Quarter: 2014Q3

REPORT INFORMATION
  Report Type: Spontaneous
  Country: PT (occurrence: PT)
  Receive Date: 20140724
  Receipt Date: 20140724
  Transmission Date: 20150326
  Serious: Yes (Disabling)
  Sender: FDA-Public Use
  Company Number: PT-MYLANLABS-2014S1016794

PATIENT
  Age: 62 Year
  Sex: Female

DRUGS (3)
  1. UNILAN [Concomitant]
     Indication: ANXIETY
     Route: 048
  2. ATORVASTATINA MYLAN [Suspect]
     Active Substance: ATORVASTATIN
     Indication: HYPERCHOLESTEROLAEMIA
     Dosage: VAL: 07-2014
     Route: 048
     Dates: start: 20140326, end: 20140531
  3. FOSAVANCE [Concomitant]
     Active Substance: ALENDRONATE SODIUM\CHOLECALCIFEROL
     Indication: OSTEOPOROSIS
     Route: 048

REACTIONS (3)
  - Pruritus [Recovered/Resolved]
  - Acne [Recovered/Resolved]
  - Cough [Recovered/Resolved]

NARRATIVE: CASE EVENT DATE: 20140326
